FAERS Safety Report 7927565-7 (Version None)
Quarter: 2011Q4

REPORT INFORMATION
  Report Type: 
  Country: None (occurrence: None)
  Receive Date: 20111118
  Receipt Date: 20111115
  Transmission Date: 20120403
  Serious: No
  Sender: FDA-Public Use
  Company Number: US-PFIZER INC-2011280583

PATIENT
  Sex: Male
  Weight: 61.224 kg

DRUGS (6)
  1. ADVIL CONGESTION RELIEF [Suspect]
     Indication: NASOPHARYNGITIS
     Dosage: UNK
     Route: 048
     Dates: start: 20111111, end: 20111112
  2. IBUPROFEN (ADVIL) [Suspect]
     Indication: NASOPHARYNGITIS
     Dosage: UNK, 2X DAILY
     Route: 048
  3. IBUPROFEN (ADVIL) [Suspect]
     Indication: PAIN
  4. ADVIL CONGESTION RELIEF [Suspect]
     Indication: NASAL CONGESTION
  5. CAFFEINE CITRATE [Suspect]
     Dosage: UNK
  6. IBUPROFEN (ADVIL) [Suspect]
     Indication: HEADACHE

REACTIONS (5)
  - NASAL CONGESTION [None]
  - MUSCULOSKELETAL DISCOMFORT [None]
  - NASOPHARYNGITIS [None]
  - HEADACHE [None]
  - FATIGUE [None]
